FAERS Safety Report 6693170-6 (Version None)
Quarter: 2010Q2

REPORT INFORMATION
  Report Type: 
  Country: None (occurrence: None)
  Receive Date: 20100422
  Receipt Date: 20100412
  Transmission Date: 20101027
  Serious: Yes (Disabling, Other)
  Sender: FDA-Public Use
  Company Number: US-ABBOTT-09P-163-0573117-00

PATIENT
  Sex: Female
  Weight: 81.72 kg

DRUGS (8)
  1. LUPRON DEPOT [Suspect]
     Indication: UTERINE LEIOMYOMA
     Route: 050
     Dates: start: 20080904, end: 20080904
  2. LUPRON DEPOT [Suspect]
     Route: 050
     Dates: start: 20090128, end: 20090128
  3. LUPRON DEPOT [Suspect]
     Dates: start: 20090129, end: 20090129
  4. LUPRON DEPOT [Suspect]
     Indication: UTERINE LEIOMYOMA
     Route: 050
     Dates: start: 20081004, end: 20081004
  5. GABAPENTIN [Concomitant]
     Indication: PAIN
  6. FLEXERIL [Concomitant]
     Indication: DRUG USE FOR UNKNOWN INDICATION
  7. VITAMIN D [Concomitant]
     Indication: VITAMIN D DEFICIENCY
  8. IRON DEXTRAN [Concomitant]
     Indication: IRON DEFICIENCY
     Route: 042

REACTIONS (28)
  - ARTHRALGIA [None]
  - ASTHENIA [None]
  - BLOOD ALKALINE PHOSPHATASE INCREASED [None]
  - BONE MARROW DISORDER [None]
  - BONE PAIN [None]
  - C-REACTIVE PROTEIN INCREASED [None]
  - DEEP VEIN THROMBOSIS [None]
  - DIZZINESS [None]
  - DYSPNOEA [None]
  - FALL [None]
  - FATIGUE [None]
  - FEELING HOT [None]
  - GAIT DISTURBANCE [None]
  - INJECTION SITE PAIN [None]
  - JOINT CREPITATION [None]
  - JOINT EFFUSION [None]
  - MUSCLE SPASMS [None]
  - MUSCULAR WEAKNESS [None]
  - MYALGIA [None]
  - NEUROPATHY PERIPHERAL [None]
  - NIGHT SWEATS [None]
  - OEDEMA PERIPHERAL [None]
  - OSTEOARTHRITIS [None]
  - PAIN [None]
  - PULMONARY EMBOLISM [None]
  - SENSATION OF HEAVINESS [None]
  - SENSORY DISTURBANCE [None]
  - TREMOR [None]
